FAERS Safety Report 16072139 (Version 1)
Quarter: 2019Q1

REPORT INFORMATION
  Report Type: Spontaneous
  Country: US (occurrence: US)
  Receive Date: 20190314
  Receipt Date: 20190314
  Transmission Date: 20190418
  Serious: No
  Sender: FDA-Public Use
  Company Number: US-SA-2019SA065081

PATIENT
  Sex: Female

DRUGS (31)
  1. CIPROFLOXACIN. [Suspect]
     Active Substance: CIPROFLOXACIN
  2. PROVIGIL [Suspect]
     Active Substance: MODAFINIL
  3. TRAZODONE [Suspect]
     Active Substance: TRAZODONE HYDROCHLORIDE
  4. CARBIDOPA/LEVODOPA [Suspect]
     Active Substance: CARBIDOPA\LEVODOPA
  5. TALWIN [Suspect]
     Active Substance: PENTAZOCINE LACTATE
  6. NABUMETONE. [Suspect]
     Active Substance: NABUMETONE
  7. PRAMIPEXOLE. [Suspect]
     Active Substance: PRAMIPEXOLE
  8. ROPINIROLE. [Suspect]
     Active Substance: ROPINIROLE
  9. ZONISAMIDE. [Suspect]
     Active Substance: ZONISAMIDE
  10. DONEPEZIL HYDROCHLORIDE. [Suspect]
     Active Substance: DONEPEZIL HYDROCHLORIDE
  11. LEVETIRACETAM. [Suspect]
     Active Substance: LEVETIRACETAM
     Dosage: UNK
  12. INDOCIN [Suspect]
     Active Substance: INDOMETHACIN
     Dosage: UNK
  13. CODEINE [Suspect]
     Active Substance: CODEINE
  14. DULOXETINE. [Suspect]
     Active Substance: DULOXETINE
  15. ESCITALOPRAM [Suspect]
     Active Substance: ESCITALOPRAM OXALATE
  16. AMBIEN [Suspect]
     Active Substance: ZOLPIDEM TARTRATE
  17. HYDROCORTISONE. [Suspect]
     Active Substance: HYDROCORTISONE
  18. GABAPENTIN. [Suspect]
     Active Substance: GABAPENTIN
  19. CEFALEXIN [Suspect]
     Active Substance: CEPHALEXIN
  20. PAROXETINE HYDROCHLORIDE. [Suspect]
     Active Substance: PAROXETINE HYDROCHLORIDE
  21. PROMETHAZINE [Suspect]
     Active Substance: PROMETHAZINE\PROMETHAZINE HYDROCHLORIDE
  22. HYDROCODONE [Suspect]
     Active Substance: HYDROCODONE
  23. TIAGABINE [Suspect]
     Active Substance: TIAGABINE
  24. DIPHENHYDRAMINE HYDROCHLORIDE. [Suspect]
     Active Substance: DIPHENHYDRAMINE HYDROCHLORIDE
  25. OXAPROZIN. [Suspect]
     Active Substance: OXAPROZIN
  26. FENTANYL. [Suspect]
     Active Substance: FENTANYL
     Dosage: UNK
  27. DEMEROL [Suspect]
     Active Substance: MEPERIDINE HYDROCHLORIDE
  28. LAMOTRIGINE. [Suspect]
     Active Substance: LAMOTRIGINE
  29. VENLAFAXINE HYDROCHLORIDE. [Suspect]
     Active Substance: VENLAFAXINE HYDROCHLORIDE
  30. HYCOTUSS [Suspect]
     Active Substance: GUAIFENESIN\HYDROCODONE BITARTRATE
  31. AMITRIPTYLINE [Suspect]
     Active Substance: AMITRIPTYLINE

REACTIONS (10)
  - Pruritus [Unknown]
  - Fatigue [Unknown]
  - Urticaria [Unknown]
  - Insomnia [Unknown]
  - Dizziness [Unknown]
  - Rash [Unknown]
  - Nausea [Unknown]
  - Confusional state [Unknown]
  - Agitation [Unknown]
  - Headache [Unknown]
